FAERS Safety Report 7271877-X (Version None)
Quarter: 2011Q1

REPORT INFORMATION
  Report Type: 
  Country: None (occurrence: None)
  Receive Date: 20110203
  Receipt Date: 20110131
  Transmission Date: 20110831
  Serious: Yes (Other)
  Sender: FDA-Public Use
  Company Number: US-JNJFOC-20100901793

PATIENT
  Sex: Female
  Weight: 65.77 kg

DRUGS (2)
  1. OPANA [Concomitant]
     Indication: RHEUMATOID ARTHRITIS
     Dosage: 2 TIMES A DAY
     Route: 048
  2. NUCYNTA [Suspect]
     Indication: RHEUMATOID ARTHRITIS
     Route: 048

REACTIONS (5)
  - DYSPNOEA [None]
  - CHEST DISCOMFORT [None]
  - PANIC REACTION [None]
  - DIZZINESS [None]
  - PALPITATIONS [None]
